FAERS Safety Report 9008881 (Version 3)
Quarter: 2013Q2

REPORT INFORMATION
  Report Type: Report from Study
  Country: IN (occurrence: IN)
  Receive Date: 20130111
  Receipt Date: 20130517
  Transmission Date: 20140414
  Serious: No
  Sender: FDA-Public Use
  Company Number: IN-009507513-2012SP014102

PATIENT
  Age: 16 Year
  Sex: Male
  Weight: 47.8 kg

DRUGS (1)
  1. PLACEBO [Suspect]
     Indication: SCHIZOPHRENIA
     Dosage: UNK
     Route: 048
     Dates: start: 20110924, end: 20111118

REACTIONS (1)
  - Pruritus [Recovered/Resolved]
